FAERS Safety Report 24917132 (Version 1)
Quarter: 2025Q1

REPORT INFORMATION
  Report Type: Spontaneous
  Country: BG (occurrence: BG)
  Receive Date: 20250203
  Receipt Date: 20250203
  Transmission Date: 20250409
  Serious: Yes (Other)
  Sender: BRISTOL-MYERS SQUIBB COMPANY
  Company Number: BG-BRISTOL-MYERS SQUIBB COMPANY-2025-012146

PATIENT
  Age: 37 Year
  Sex: Female

DRUGS (4)
  1. OPDIVO [Suspect]
     Active Substance: NIVOLUMAB
     Indication: Renal cell carcinoma
     Dates: start: 2024
  2. OPDIVO [Suspect]
     Active Substance: NIVOLUMAB
     Route: 042
     Dates: start: 202309
  3. YERVOY [Suspect]
     Active Substance: IPILIMUMAB
     Indication: Renal cell carcinoma
     Route: 042
     Dates: start: 202309
  4. DENOSUMAB [Concomitant]
     Active Substance: DENOSUMAB
     Indication: Renal cell carcinoma
     Route: 042
     Dates: start: 202309

REACTIONS (3)
  - Blood thyroid stimulating hormone abnormal [Unknown]
  - Rash [Unknown]
  - Asthenia [Unknown]
